FAERS Safety Report 10197701 (Version 2)
Quarter: 2014Q2

REPORT INFORMATION
  Report Type: Spontaneous
  Country: US (occurrence: US)
  Receive Date: 20140527
  Receipt Date: 20140527
  Transmission Date: 20141212
  Serious: No
  Sender: FDA-Public Use
  Company Number: US-BRISTOL-MYERS SQUIBB COMPANY-19114834

PATIENT
  Age: 67 Year
  Sex: Female
  Weight: 90.7 kg

DRUGS (10)
  1. PRAVACHOL [Suspect]
     Indication: BLOOD CHOLESTEROL INCREASED
  2. LASIX [Concomitant]
  3. CYCLOBENZAPRINE [Concomitant]
     Indication: NEURALGIA
  4. CYMBALTA [Concomitant]
  5. BENICAR [Concomitant]
     Indication: HYPERTENSION
  6. OMEPRAZOLE [Concomitant]
     Indication: GASTROOESOPHAGEAL REFLUX DISEASE
  7. FOSAMAX [Concomitant]
     Indication: OSTEOPOROSIS
  8. TOPAMAX [Concomitant]
  9. SINGULAIR [Concomitant]
     Indication: ASTHMA
  10. LIPITOR [Concomitant]

REACTIONS (1)
  - Drug ineffective [Unknown]
